FAERS Safety Report 4622534-7 (Version None)
Quarter: 2005Q1

REPORT INFORMATION
  Report Type: 
  Country: None (occurrence: None)
  Receive Date: 20050317
  Receipt Date: 20040614
  Transmission Date: 20050727
  Serious: Yes (Other)
  Sender: FDA-Public Use
  Company Number: PHEH2004US06461

PATIENT
  Age: 50 Year
  Sex: Female

DRUGS (6)
  1. TRILEPTAL [Suspect]
     Indication: PAIN MANAGEMENT
     Dosage: 150 MG, BID, ORAL  ;  300 MG BID ORAL
     Route: 048
     Dates: start: 20040301
  2. TRILEPTAL [Suspect]
     Indication: PAIN MANAGEMENT
     Dosage: 150 MG, BID, ORAL  ;  300 MG BID ORAL
     Route: 048
     Dates: start: 20040501
  3. PREMARIN [Concomitant]
  4. BEXTRA [Concomitant]
  5. ARICEPT [Concomitant]
  6. DEXIDRINE (DEXAMFETAMINE SULFATE) [Concomitant]

REACTIONS (3)
  - HEADACHE [None]
  - HYPERTENSION [None]
  - INFLUENZA [None]
